FAERS Safety Report 8814043 (Version 2)
Quarter: 2012Q4

REPORT INFORMATION
  Report Type: 
  Country: US (occurrence: US)
  Receive Date: 20120928
  Receipt Date: 20121122
  Transmission Date: 20130627
  Serious: No
  Sender: FDA-Public Use
  Company Number: US-PFIZER INC-2012240480

PATIENT
  Age: 40 Year
  Sex: Male
  Weight: 104 kg

DRUGS (3)
  1. CHANTIX [Suspect]
     Indication: SMOKING CESSATION THERAPY
     Dosage: UNK
     Route: 048
     Dates: start: 201208
  2. LISINOPRIL [Suspect]
     Indication: BLOOD PRESSURE HIGH
     Dosage: 20 mg, 1x/day
     Route: 048
  3. LOVAZA [Suspect]
     Indication: HIGH CHOLESTEROL
     Dosage: UNK, 1x/day
     Route: 048

REACTIONS (1)
  - Drug screen false positive [Unknown]
